FAERS Safety Report 11626931 (Version 2)
Quarter: 2015Q4

REPORT INFORMATION
  Report Type: Spontaneous
  Country: US (occurrence: US)
  Receive Date: 20151013
  Receipt Date: 20151014
  Transmission Date: 20160304
  Serious: No
  Sender: FDA-Public Use
  Company Number: US-009507513-1509USA011945

PATIENT
  Age: 75 Year
  Sex: Male

DRUGS (6)
  1. TICE BCG [Suspect]
     Active Substance: BACILLUS CALMETTE-GUERIN SUBSTRAIN TICE LIVE ANTIGEN
     Dosage: 1 VIAL IN 50 ML, ONCE A WEEK FOR SIX WEEKS
     Route: 043
     Dates: start: 20150520
  2. TICE BCG [Suspect]
     Active Substance: BACILLUS CALMETTE-GUERIN SUBSTRAIN TICE LIVE ANTIGEN
     Dosage: 1 VIAL IN 50 ML, ONCE A WEEK FOR SIX WEEKS
     Route: 043
     Dates: start: 20150506
  3. TICE BCG [Suspect]
     Active Substance: BACILLUS CALMETTE-GUERIN SUBSTRAIN TICE LIVE ANTIGEN
     Dosage: 1 VIAL IN 50 ML, ONCE A WEEK FOR SIX WEEKS
     Route: 043
     Dates: start: 20150429
  4. TICE BCG [Suspect]
     Active Substance: BACILLUS CALMETTE-GUERIN SUBSTRAIN TICE LIVE ANTIGEN
     Indication: BLADDER CANCER
     Dosage: 1 VIAL IN 50 ML, ONCE A WEEK FOR SIX WEEKS
     Route: 043
     Dates: start: 20150415
  5. TICE BCG [Suspect]
     Active Substance: BACILLUS CALMETTE-GUERIN SUBSTRAIN TICE LIVE ANTIGEN
     Dosage: 1 VIAL IN 50 ML, ONCE A WEEK FOR SIX WEEKS
     Route: 043
     Dates: start: 20150422
  6. TICE BCG [Suspect]
     Active Substance: BACILLUS CALMETTE-GUERIN SUBSTRAIN TICE LIVE ANTIGEN
     Dosage: 1 VIAL IN 50 ML, ONCE A WEEK FOR SIX WEEKS
     Route: 043
     Dates: start: 20150513

REACTIONS (2)
  - Urethral obstruction [Not Recovered/Not Resolved]
  - Drug dose omission [Unknown]

NARRATIVE: CASE EVENT DATE: 20150922
